FAERS Safety Report 9424568 (Version 1)
Quarter: 2013Q3

REPORT INFORMATION
  Report Type: Spontaneous
  Country: US (occurrence: None)
  Receive Date: 20130725
  Receipt Date: 20130725
  Transmission Date: 20140515
  Serious: Yes (Other)
  Sender: FDA-Public Use
  Company Number: 54973 AE # 1443

PATIENT
  Age: 92 Year
  Sex: Female

DRUGS (3)
  1. HYLANDS IGNATIA 30X [Suspect]
     Indication: EMOTIONAL DISORDER
     Dosage: 3 PELLETS FOR 9 DAYS
  2. STATINS [Suspect]
  3. STATINS [Concomitant]

REACTIONS (3)
  - Gastric dilatation [None]
  - Blood potassium decreased [None]
  - Dyspepsia [None]
